FAERS Safety Report 9740437 (Version 3)
Quarter: 2014Q1

REPORT INFORMATION
  Report Type: Spontaneous
  Country: JP (occurrence: JP)
  Receive Date: 20131209
  Receipt Date: 20140121
  Transmission Date: 20141002
  Serious: Yes (Other)
  Sender: FDA-Public Use
  Company Number: JP-B.I. PHARMACEUTICALS,INC./RIDGEFIELD-2013-BI-40980YA

PATIENT
  Sex: Male

DRUGS (1)
  1. HARNAL D (TAMSULOSIN HYDROCHLORIDE) [Suspect]
     Dosage: 0.2 MG
     Route: 048

REACTIONS (1)
  - Gastrointestinal endoscopic therapy [Unknown]
